FAERS Safety Report 4397773-3 (Version None)
Quarter: 2004Q3

REPORT INFORMATION
  Report Type: 
  Country: None (occurrence: None)
  Receive Date: 20040713
  Receipt Date: 20040630
  Transmission Date: 20050211
  Serious: Yes (Hospitalization)
  Sender: FDA-Public Use
  Company Number: US-JNJFOC-20040700460

PATIENT
  Age: 63 Year
  Sex: Female

DRUGS (12)
  1. DURAGESIC [Suspect]
     Dosage: 100 UG/HR, 1 IN 72 HOUR, TRANSDERMAL
     Route: 062
     Dates: start: 20040101
  2. VIOXX [Concomitant]
  3. AMBIEN [Concomitant]
  4. BUSPIRONE [Concomitant]
  5. DILAUDID [Concomitant]
  6. LEXAPRO (ALL OTHER THERAPEUTIC PRODUCTS) TABLETS [Concomitant]
  7. PROTONIX (PANTOPRAZOLE) TABLETS [Concomitant]
  8. KLO-CORN (POTASSIUM CHLORIDE) TABLETS [Concomitant]
  9. SODIUM BICARBONATE TABLETS [Concomitant]
  10. PREDNISONE [Concomitant]
  11. CEROVITE (GERAVITE) TABLETS [Concomitant]
  12. ENBREL [Concomitant]

REACTIONS (7)
  - APPLICATION SITE ERYTHEMA [None]
  - APPLICATION SITE PAPULES [None]
  - APPLICATION SITE PRURITUS [None]
  - DRUG EFFECT DECREASED [None]
  - INSOMNIA [None]
  - PSYCHOMOTOR HYPERACTIVITY [None]
  - ULCER [None]
